FAERS Safety Report 10498254 (Version 1)
Quarter: 2014Q4

REPORT INFORMATION
  Report Type: Spontaneous
  Country: US (occurrence: None)
  Receive Date: 20141002
  Receipt Date: 20141002
  Transmission Date: 20150528
  Serious: No
  Sender: FDA-Public Use
  Company Number: MW 14001

PATIENT
  Age: 49 Year
  Sex: Female

DRUGS (3)
  1. PROGESTERONE/TESTOSTERONE/DHEA/PREGNENOLONE [Suspect]
     Active Substance: PRASTERONE\PREGNENOLONE\PROGESTERONE\TESTOSTERONE
     Indication: SLEEP DISORDER
     Dates: start: 20140822, end: 20140917
  2. PROGESTERONE/TESTOSTERONE/DHEA/PREGNENOLONE [Suspect]
     Active Substance: PRASTERONE\PREGNENOLONE\PROGESTERONE\TESTOSTERONE
     Indication: MENOPAUSAL SYMPTOMS
     Dates: start: 20140822, end: 20140917
  3. PROGESTERONE/TESTOSTERONE/DHEA/PREGNENOLONE [Suspect]
     Active Substance: PRASTERONE\PREGNENOLONE\PROGESTERONE\TESTOSTERONE
     Indication: FATIGUE
     Dates: start: 20140822, end: 20140917

REACTIONS (3)
  - Product compounding quality issue [None]
  - Accidental underdose [None]
  - Product taste abnormal [None]

NARRATIVE: CASE EVENT DATE: 20140917
